FAERS Safety Report 9009293 (Version 1)
Quarter: 2013Q1

REPORT INFORMATION
  Report Type: Report from Study
  Country: IL (occurrence: IL)
  Receive Date: 20130111
  Receipt Date: 20130111
  Transmission Date: 20140127
  Serious: Yes (Hospitalization, Other)
  Sender: FDA-Public Use
  Company Number: IL-ROCHE-562457

PATIENT
  Age: 38 Year
  Sex: Male
  Weight: 96.7 kg

DRUGS (9)
  1. PEG-INTERFERON ALFA 2A [Suspect]
     Indication: CHRONIC HEPATITIS C
     Route: 058
     Dates: start: 20070425, end: 20080501
  2. RIBAVIRIN [Suspect]
     Indication: CHRONIC HEPATITIS C
     Route: 048
     Dates: start: 20071125, end: 20080501
  3. PARACETAMOL [Concomitant]
     Indication: PYREXIA
  4. OPTALGIN [Concomitant]
     Indication: HEADACHE
  5. SYNTHOMYCIN [Concomitant]
  6. TAROCIDIN [Concomitant]
  7. COSOPT [Concomitant]
     Route: 065
  8. LOSEC (ISRAEL) [Concomitant]
     Route: 065
  9. PREDNISONE [Concomitant]
     Route: 048

REACTIONS (3)
  - Visual acuity reduced [Unknown]
  - Optic neuropathy [Not Recovered/Not Resolved]
  - Blindness unilateral [Not Recovered/Not Resolved]
